FAERS Safety Report 24861707 (Version 3)
Quarter: 2025Q2

REPORT INFORMATION
  Report Type: Other
  Country: US (occurrence: US)
  Receive Date: 20250120
  Receipt Date: 20250402
  Transmission Date: 20250716
  Serious: Yes (Hospitalization)
  Sender: TRAVERE THERAPEUTICS
  Company Number: US-TRAVERE-2024TVT01340

PATIENT
  Age: 34 Year
  Sex: Female

DRUGS (2)
  1. FILSPARI [Suspect]
     Active Substance: SPARSENTAN
     Indication: IgA nephropathy
     Route: 048
     Dates: start: 202412
  2. FILSPARI [Suspect]
     Active Substance: SPARSENTAN
     Dosage: LOT NUMBER: 1976070, EXPIRY DATE: 31-AUG-2025
     Route: 048
     Dates: start: 202412

REACTIONS (4)
  - Oxygen saturation decreased [Unknown]
  - Gait disturbance [Unknown]
  - Headache [None]
  - Hypotension [Unknown]

NARRATIVE: CASE EVENT DATE: 20241201
